FAERS Safety Report 5054521-1 (Version None)
Quarter: 2006Q3

REPORT INFORMATION
  Report Type: 
  Country: None (occurrence: None)
  Receive Date: 20060714
  Receipt Date: 20060629
  Transmission Date: 20061208
  Serious: Yes (Hospitalization)
  Sender: FDA-Public Use
  Company Number: VNL_0162_2006

PATIENT
  Sex: Male

DRUGS (2)
  1. APO-GO [Suspect]
     Dosage: DF INFUSION SC
     Route: 058
     Dates: start: 20060602, end: 20060622
  2. PENICILLIN [Concomitant]

REACTIONS (5)
  - INFUSION SITE ERYTHEMA [None]
  - INFUSION SITE HAEMATOMA [None]
  - INFUSION SITE INDURATION [None]
  - INFUSION SITE MASS [None]
  - INFUSION SITE WARMTH [None]
